FAERS Safety Report 11745398 (Version 1)
Quarter: 2015Q4

REPORT INFORMATION
  Report Type: Spontaneous
  Country: IT (occurrence: IT)
  Receive Date: 20151117
  Receipt Date: 20151117
  Transmission Date: 20160304
  Serious: Yes (Other)
  Sender: FDA-Public Use
  Company Number: IT-ROCHE-1652291

PATIENT
  Age: 77 Year
  Sex: Female
  Weight: 79 kg

DRUGS (3)
  1. CARBOPLATIN. [Concomitant]
     Active Substance: CARBOPLATIN
     Indication: OVARIAN CANCER
     Route: 041
     Dates: start: 20150427, end: 20150807
  2. DOCETAXEL. [Concomitant]
     Active Substance: DOCETAXEL
     Indication: OVARIAN CANCER
     Route: 041
     Dates: start: 20150427, end: 20150807
  3. AVASTIN [Suspect]
     Active Substance: BEVACIZUMAB
     Indication: OVARIAN CANCER
     Dosage: 1 VIAL OF 400 MG
     Route: 041
     Dates: start: 20150515, end: 20150807

REACTIONS (3)
  - Ejection fraction decreased [Recovering/Resolving]
  - Hypertensive heart disease [Recovering/Resolving]
  - Pulmonary hypertension [Recovering/Resolving]

NARRATIVE: CASE EVENT DATE: 20150902
